FAERS Safety Report 9450621 (Version 1)
Quarter: 2013Q3

REPORT INFORMATION
  Report Type: Spontaneous
  Country: DE (occurrence: DE)
  Receive Date: 20130809
  Receipt Date: 20130809
  Transmission Date: 20140515
  Serious: Yes (Other)
  Sender: FDA-Public Use
  Company Number: DE-PFIZER INC-2012204065

PATIENT
  Age: 24 Year
  Sex: Female

DRUGS (1)
  1. ZELDOX [Suspect]
     Dosage: 40 MG, UNK
     Route: 064

REACTIONS (1)
  - Abortion spontaneous [Unknown]
